FAERS Safety Report 18852945 (Version 1)
Quarter: 2021Q1

REPORT INFORMATION
  Report Type: Spontaneous
  Country: CN (occurrence: CN)
  Receive Date: 20210205
  Receipt Date: 20210205
  Transmission Date: 20210420
  Serious: Yes (Hospitalization)
  Sender: FDA-Public Use
  Company Number: CN-PFIZER INC-2021093509

PATIENT
  Age: 15 Year
  Sex: Female
  Weight: 40 kg

DRUGS (1)
  1. CYTARABINE. [Suspect]
     Active Substance: CYTARABINE
     Indication: ACUTE LEUKAEMIA
     Dosage: 1.5 G, 2X/DAY
     Route: 042
     Dates: start: 20210115, end: 20210120

REACTIONS (6)
  - White blood cell count decreased [Recovering/Resolving]
  - Vomiting [Recovering/Resolving]
  - Conjunctivitis [Recovering/Resolving]
  - Photophobia [Recovering/Resolving]
  - Cytarabine syndrome [Recovering/Resolving]
  - Rash [Recovering/Resolving]

NARRATIVE: CASE EVENT DATE: 20210120
